FAERS Safety Report 8314758-2 (Version None)
Quarter: 2012Q2

REPORT INFORMATION
  Report Type: 
  Country: None (occurrence: None)
  Receive Date: 20120426
  Receipt Date: 20120424
  Transmission Date: 20120825
  Serious: Yes (Hospitalization)
  Sender: FDA-Public Use
  Company Number: DE-ELI_LILLY_AND_COMPANY-DE201202000957

PATIENT
  Age: 63 Year
  Sex: Female

DRUGS (11)
  1. SULFASALAZINE [Concomitant]
     Dosage: UNK, BID
  2. BYDUREON [Suspect]
     Indication: TYPE 2 DIABETES MELLITUS
     Dosage: 2 MG, WEEKLY (1/W)
     Route: 058
     Dates: start: 20111001
  3. CARVEDILOL [Concomitant]
     Dosage: 25 MG, QD
  4. PANTOPRAZOLE [Concomitant]
     Dosage: 20 MG, QD
  5. SPIRONOLACTONE [Concomitant]
     Dosage: 25 MG, QD
  6. VENLAFAXINE [Concomitant]
     Dosage: 75 MG, QD
  7. ASPIRIN [Concomitant]
     Dosage: 100 MG, QD
  8. RAMIPRIL [Concomitant]
     Dosage: 5 MG, QD
  9. SIMVASTATIN [Concomitant]
     Dosage: 40 MG, QD
  10. METFORMIN HCL [Concomitant]
     Dosage: 850 MG, BID
  11. FUROSEMIDE [Concomitant]
     Dosage: 40 MG, QD

REACTIONS (2)
  - ISCHAEMIC CARDIOMYOPATHY [None]
  - LEFT VENTRICULAR FAILURE [None]
